FAERS Safety Report 19775630 (Version 1)
Quarter: 2021Q3

REPORT INFORMATION
  Report Type: Report from Study
  Country: EG (occurrence: EG)
  Receive Date: 20210901
  Receipt Date: 20210901
  Transmission Date: 20211014
  Serious: Yes (Other)
  Sender: FDA-Public Use
  Company Number: NVSC2021EG192690

PATIENT
  Age: 6 Year
  Sex: Female

DRUGS (6)
  1. VITAMOUNT [Concomitant]
     Indication: PRODUCT USED FOR UNKNOWN INDICATION
     Dosage: 4 CM QD (AT LUNCH TIME) (STARTED WITH OMNITROPE)
     Route: 065
  2. VIDROP [Concomitant]
     Dosage: 20 DRP QD
     Route: 065
  3. OMNITROPE [Suspect]
     Active Substance: SOMATROPIN
     Indication: COSTELLO SYNDROME
     Dosage: 0.7 OR 0.8 MG, QD
     Route: 058
     Dates: start: 20191002
  4. VIDROP [Concomitant]
     Indication: PRODUCT USED FOR UNKNOWN INDICATION
     Dosage: 10 DRP, QD (IN THE MORNING) (STARTED WITH OMNITROPE)
     Route: 065
  5. OMNITROPE [Suspect]
     Active Substance: SOMATROPIN
     Indication: GROWTH RETARDATION
  6. ZINC. [Concomitant]
     Active Substance: ZINC
     Indication: PRODUCT USED FOR UNKNOWN INDICATION
     Dosage: 2 CM QD (AT DINNER TIME) (STARTED WITH OMNITROPE)
     Route: 065

REACTIONS (4)
  - Precocious puberty [Recovered/Resolved]
  - Off label use [Recovered/Resolved]
  - Breast enlargement [Recovered/Resolved]
  - Growth retardation [Not Recovered/Not Resolved]

NARRATIVE: CASE EVENT DATE: 20191002
